FAERS Safety Report 9729740 (Version 1)
Quarter: 2013Q4

REPORT INFORMATION
  Report Type: Spontaneous
  Country: US (occurrence: US)
  Receive Date: 20131204
  Receipt Date: 20131204
  Transmission Date: 20140711
  Serious: No
  Sender: FDA-Public Use
  Company Number: US-GILEAD-2009-0021953

PATIENT
  Sex: Female
  Weight: 58.06 kg

DRUGS (11)
  1. LETAIRIS [Suspect]
     Indication: PULMONARY ARTERIAL HYPERTENSION
     Route: 048
     Dates: start: 20090324
  2. DIGOXIN [Concomitant]
  3. METOPROLOL [Concomitant]
  4. LOVASTATIN [Concomitant]
  5. NITROLINGUAL [Concomitant]
  6. WARFARIN [Concomitant]
  7. SPIRONOLACTONE [Concomitant]
  8. LASIX [Concomitant]
  9. GABAPENTIN [Concomitant]
  10. GLIMEPIRIDE [Concomitant]
  11. DICLOFENAC SODIUM [Concomitant]

REACTIONS (1)
  - Coagulation test abnormal [Unknown]
